FAERS Safety Report 8245269-0 (Version None)
Quarter: 2012Q1

REPORT INFORMATION
  Report Type: 
  Country: None (occurrence: None)
  Receive Date: 20120329
  Receipt Date: 20120316
  Transmission Date: 20120608
  Serious: Yes (Hospitalization)
  Sender: FDA-Public Use
  Company Number: DE-MYLANLABS-2012S1005877

PATIENT
  Age: 42 Year
  Sex: Male
  Weight: 80 kg

DRUGS (2)
  1. RASILEZ [Suspect]
     Route: 048
  2. METOPROLOL + HYDROCHLOROTHIAZIDE [Suspect]
     Route: 048

REACTIONS (3)
  - HYPOTENSION [None]
  - SUICIDE ATTEMPT [None]
  - OVERDOSE [None]
